FAERS Safety Report 6937715-7 (Version None)
Quarter: 2010Q3

REPORT INFORMATION
  Report Type: 
  Country: None (occurrence: None)
  Receive Date: 20100820
  Receipt Date: 20100820
  Transmission Date: 20110219
  Serious: Yes (Hospitalization)
  Sender: FDA-Public Use
  Company Number: None

PATIENT
  Age: 4 Year
  Sex: Female
  Weight: 16 kg

DRUGS (2)
  1. ONDANSETRON [Suspect]
     Indication: ANTIEMETIC SUPPORTIVE CARE
     Dosage: 4 MG ONCE IV
     Route: 042
     Dates: start: 20100817, end: 20100817
  2. SODIUM CHLORIDE 0.9% 100 ML BAG HOSPIRA [Suspect]
     Dosage: NS 100 ML ONCE IV
     Route: 042

REACTIONS (4)
  - CONFUSIONAL STATE [None]
  - DEPRESSED LEVEL OF CONSCIOUSNESS [None]
  - LETHARGY [None]
  - VOMITING [None]
